FAERS Safety Report 7489025-X (Version None)
Quarter: 2011Q2

REPORT INFORMATION
  Report Type: 
  Country: None (occurrence: None)
  Receive Date: 20110518
  Receipt Date: 20110510
  Transmission Date: 20111010
  Serious: Yes (Death)
  Sender: FDA-Public Use
  Company Number: US-CELGENEUS-163-21880-11030972

PATIENT
  Sex: Male

DRUGS (11)
  1. PHENERGAN HCL [Concomitant]
     Route: 065
  2. ASPIRIN [Concomitant]
     Route: 065
  3. AMARYL [Concomitant]
     Dosage: 2 MILLIGRAM
     Route: 065
  4. GABAPENTIN [Concomitant]
     Route: 065
  5. CETIRIZINE HCL [Concomitant]
     Route: 065
  6. REVLIMID [Suspect]
     Dosage: 15 MILLIGRAM
     Route: 048
     Dates: start: 20110101, end: 20110101
  7. MAGNESIUM OXIDE [Concomitant]
     Dosage: 400
     Route: 065
  8. NAPROSYN [Concomitant]
     Route: 065
  9. METFORMIN HCL [Concomitant]
     Dosage: 500
     Route: 065
  10. REVLIMID [Suspect]
     Indication: MULTIPLE MYELOMA
     Dosage: 5 MILLIGRAM
     Route: 048
     Dates: start: 20100701
  11. REVLIMID [Suspect]
     Dosage: 10 MILLIGRAM
     Route: 048
     Dates: start: 20101101

REACTIONS (2)
  - MYOCARDITIS [None]
  - VENTRICULAR TACHYCARDIA [None]
